FAERS Safety Report 8063759-0 (Version None)
Quarter: 2011Q4

REPORT INFORMATION
  Report Type: 
  Country: None (occurrence: None)
  Receive Date: 20111221
  Receipt Date: 20110718
  Transmission Date: 20120403
  Serious: Yes (Hospitalization)
  Sender: FDA-Public Use
  Company Number: PHHY2011US53857

PATIENT
  Age: 34 Year
  Sex: Male
  Weight: 74.4 kg

DRUGS (2)
  1. EXJADE [Suspect]
     Indication: TRANSFUSION RELATED COMPLICATION
     Dosage: 1500MG, DAILY, ORAL
     Route: 048
     Dates: start: 20080401
  2. EXJADE [Suspect]
     Indication: HAEMOCHROMATOSIS
     Dosage: 1500MG, DAILY, ORAL
     Route: 048
     Dates: start: 20080401

REACTIONS (1)
  - SICKLE CELL ANAEMIA WITH CRISIS [None]
